FAERS Safety Report 11244140 (Version 2)
Quarter: 2015Q3

REPORT INFORMATION
  Report Type: Spontaneous
  Country: US (occurrence: US)
  Receive Date: 20150707
  Receipt Date: 20150922
  Transmission Date: 20151125
  Serious: No
  Sender: FDA-Public Use
  Company Number: US-PFIZER INC-2015220888

PATIENT
  Sex: Female

DRUGS (1)
  1. LYRICA [Suspect]
     Active Substance: PREGABALIN
     Dosage: 100 MG, UNK

REACTIONS (7)
  - Vomiting [Unknown]
  - Pain [Unknown]
  - Anxiety [Unknown]
  - Tremor [Unknown]
  - Insomnia [Unknown]
  - Malaise [Unknown]
  - Drug withdrawal syndrome [Unknown]
